FAERS Safety Report 20834114 (Version 4)
Quarter: 2022Q2

REPORT INFORMATION
  Report Type: Spontaneous
  Country: US (occurrence: US)
  Receive Date: 20220516
  Receipt Date: 20220531
  Transmission Date: 20220721
  Serious: Yes (Other)
  Sender: FDA-Public Use
  Company Number: US-PFIZER INC-202200684916

PATIENT
  Age: 78 Year
  Sex: Female

DRUGS (2)
  1. XELJANZ XR [Suspect]
     Active Substance: TOFACITINIB CITRATE
     Indication: Rheumatoid arthritis
     Dosage: 11 MG
     Dates: end: 20210805
  2. XELJANZ XR [Suspect]
     Active Substance: TOFACITINIB CITRATE
     Dosage: UNK

REACTIONS (6)
  - Cerebrovascular accident [Unknown]
  - Neoplasm malignant [Unknown]
  - Cardiac operation [Unknown]
  - Intentional product misuse [Unknown]
  - Confusional state [Unknown]
  - Emotional disorder [Unknown]
